FAERS Safety Report 10571854 (Version 3)
Quarter: 2014Q4

REPORT INFORMATION
  Report Type: Spontaneous
  Country: DE (occurrence: DE)
  Receive Date: 20141107
  Receipt Date: 20141204
  Transmission Date: 20150529
  Serious: Yes (Other)
  Sender: FDA-Public Use
  Company Number: DE-TAKEDA-2014TUS009375

PATIENT
  Sex: Female

DRUGS (7)
  1. ENTYVIO [Suspect]
     Active Substance: VEDOLIZUMAB
     Indication: CROHN^S DISEASE
     Dosage: FIRST DOSE
     Route: 042
  2. CORTISONE (NOS) [Concomitant]
     Indication: HYPERSENSITIVITY
     Dosage: PREVIOUSLY 40 MG THEN 60 MG THEN STOPPED
     Dates: start: 2014
  3. INSULIN PUMP (NOS) [Concomitant]
     Indication: TYPE 1 DIABETES MELLITUS
     Dosage: UNK
  4. L-THYROXIN [Concomitant]
     Active Substance: LEVOTHYROXINE SODIUM
     Indication: AUTOIMMUNE THYROIDITIS
     Dosage: 112 ?G, UNK
  5. HUMALOG [Concomitant]
     Active Substance: INSULIN LISPRO
     Indication: TYPE 1 DIABETES MELLITUS
     Dosage: UNK
     Dates: start: 2000
  6. ENTYVIO [Suspect]
     Active Substance: VEDOLIZUMAB
     Dosage: SECOND DOSE
     Route: 042
     Dates: start: 20140925, end: 20140925
  7. ENTYVIO [Suspect]
     Active Substance: VEDOLIZUMAB
     Dosage: THIRD DOSE
     Route: 042
     Dates: start: 20141021

REACTIONS (5)
  - Weight increased [Not Recovered/Not Resolved]
  - Hypoglycaemia [Recovered/Resolved]
  - Ileus [Recovered/Resolved]
  - Diabetes mellitus inadequate control [Recovering/Resolving]
  - Constipation [Not Recovered/Not Resolved]

NARRATIVE: CASE EVENT DATE: 201409
